FAERS Safety Report 18991744 (Version 1)
Quarter: 2021Q1

REPORT INFORMATION
  Report Type: Spontaneous
  Country: US (occurrence: US)
  Receive Date: 20210309
  Receipt Date: 20210309
  Transmission Date: 20210420
  Serious: No
  Sender: FDA-Public Use
  Company Number: None

PATIENT
  Age: 74 Year
  Weight: 65.25 kg

DRUGS (15)
  1. ASPIRIN 81MG [Concomitant]
     Active Substance: ASPIRIN
  2. NORVASC [Concomitant]
     Active Substance: AMLODIPINE BESYLATE
  3. CAPECITABINE. [Suspect]
     Active Substance: CAPECITABINE
     Indication: BILE DUCT CANCER
     Dosage: ?          OTHER FREQUENCY:BID M?F 2/3WEEKS;?
     Route: 048
     Dates: start: 20210209, end: 20210309
  4. ATORVASTATIN [Concomitant]
     Active Substance: ATORVASTATIN
  5. NORCO [Concomitant]
     Active Substance: ACETAMINOPHEN\HYDROCODONE BITARTRATE
  6. CAPECITABINE. [Suspect]
     Active Substance: CAPECITABINE
     Indication: BILE DUCT CANCER
     Dosage: ?          OTHER FREQUENCY:BID M?F X2/3WKS;?
     Route: 048
     Dates: start: 20210209, end: 20210309
  7. ZYRTEC [Concomitant]
     Active Substance: CETIRIZINE HYDROCHLORIDE
  8. CLOPIDOGREL [Concomitant]
     Active Substance: CLOPIDOGREL BISULFATE
  9. PROAIR HFA [Concomitant]
     Active Substance: ALBUTEROL SULFATE
  10. LEXAPRO [Concomitant]
     Active Substance: ESCITALOPRAM OXALATE
  11. METFORMIN [Concomitant]
     Active Substance: METFORMIN HYDROCHLORIDE
  12. SPIRIVA RESPIMAT [Concomitant]
     Active Substance: TIOTROPIUM BROMIDE
  13. BENADRYL [Concomitant]
     Active Substance: DIPHENHYDRAMINE HYDROCHLORIDE
  14. SINGULAIR [Concomitant]
     Active Substance: MONTELUKAST SODIUM
  15. VITAMIN D [Concomitant]
     Active Substance: VITAMIN D NOS

REACTIONS (4)
  - Paraesthesia [None]
  - Pain in extremity [None]
  - Gait inability [None]
  - Swelling [None]

NARRATIVE: CASE EVENT DATE: 20210309
